FAERS Safety Report 5979823-3 (Version None)
Quarter: 2008Q4

REPORT INFORMATION
  Report Type: 
  Country: None (occurrence: None)
  Receive Date: 20081205
  Receipt Date: 20081127
  Transmission Date: 20090506
  Serious: Yes (Hospitalization)
  Sender: FDA-Public Use
  Company Number: JP-SP-2008-03687

PATIENT
  Age: 64 Year
  Sex: Female

DRUGS (2)
  1. IMMUCYST [Suspect]
     Indication: CARCINOMA IN SITU OF BLADDER
     Route: 043
     Dates: start: 20071109, end: 20071228
  2. ETIZOLAM [Concomitant]

REACTIONS (2)
  - BOVINE TUBERCULOSIS [None]
  - PNEUMONIA [None]
